FAERS Safety Report 7332685-4 (Version None)
Quarter: 2011Q1

REPORT INFORMATION
  Report Type: 
  Country: None (occurrence: None)
  Receive Date: 20110304
  Receipt Date: 20110218
  Transmission Date: 20110831
  Serious: Yes (Other)
  Sender: FDA-Public Use
  Company Number: PHHY2011SE14702

PATIENT
  Age: 85 Year
  Sex: Female

DRUGS (8)
  1. SELEGILINE [Concomitant]
  2. LEVODOPA [Concomitant]
  3. CALCIUM [Concomitant]
  4. CLOPIDOGREL [Concomitant]
  5. ENALAPRIL [Concomitant]
     Dosage: UNK
     Dates: start: 19980101, end: 20080101
  6. TRAMADOL HCL [Concomitant]
     Dosage: UNK
     Dates: start: 20050301, end: 20061201
  7. ALENDRONIC ACID [Suspect]
     Dosage: 70 MG/WEEK
     Dates: start: 20050601, end: 20090201
  8. ASPIRIN [Concomitant]
     Dosage: UNK
     Dates: start: 19970101, end: 20080301

REACTIONS (14)
  - STAPHYLOCOCCUS TEST POSITIVE [None]
  - WEIGHT DECREASED [None]
  - ORAL DISCOMFORT [None]
  - CANDIDA TEST POSITIVE [None]
  - TONGUE ULCERATION [None]
  - ORAL DISORDER [None]
  - EATING DISORDER [None]
  - BACILLUS TEST POSITIVE [None]
  - ORAL MUCOSA ATROPHY [None]
  - SPEECH DISORDER [None]
  - MOUTH ULCERATION [None]
  - ORAL PAIN [None]
  - AGEUSIA [None]
  - MUCOSAL INFLAMMATION [None]
